FAERS Safety Report 24349911 (Version 1)
Quarter: 2024Q3

REPORT INFORMATION
  Report Type: Spontaneous
  Country: CN (occurrence: CN)
  Receive Date: 20240923
  Receipt Date: 20240923
  Transmission Date: 20241017
  Serious: No
  Sender: ROCHE
  Company Number: CN-ROCHE-3487375

PATIENT
  Age: 49 Year
  Sex: Male
  Weight: 65.0 kg

DRUGS (4)
  1. HERCEPTIN [Suspect]
     Active Substance: TRASTUZUMAB
     Indication: Metastatic gastric cancer
     Route: 041
     Dates: start: 20231204
  2. SINTILIMAB [Suspect]
     Active Substance: SINTILIMAB
     Indication: Metastatic gastric cancer
     Route: 041
     Dates: start: 20231204
  3. CAPECITABINE [Suspect]
     Active Substance: CAPECITABINE
     Indication: Metastatic gastric cancer
     Route: 048
     Dates: start: 20231204
  4. OXALIPLATIN [Suspect]
     Active Substance: OXALIPLATIN
     Indication: Metastatic gastric cancer
     Route: 041
     Dates: start: 20231204

REACTIONS (1)
  - Platelet count decreased [Unknown]

NARRATIVE: CASE EVENT DATE: 20231226
